FAERS Safety Report 23932843 (Version 1)
Quarter: 2024Q2

REPORT INFORMATION
  Report Type: Report from Study
  Country: JP (occurrence: JP)
  Receive Date: 20240603
  Receipt Date: 20240603
  Transmission Date: 20240716
  Serious: Yes (Death)
  Sender: FDA-Public Use
  Company Number: JP-TEVA-VS-3203692

PATIENT

DRUGS (5)
  1. PREDNISOLONE [Suspect]
     Active Substance: PREDNISOLONE
     Indication: Diffuse large B-cell lymphoma
     Dosage: RECEIVED EVERY DAY ON DAYS?2 6?OF THE CYCLE; EVERY 3 WEEKS UNDER?R-CHOP REGIMEN
     Route: 048
  2. RITUXIMAB [Suspect]
     Active Substance: RITUXIMAB
     Indication: Diffuse large B-cell lymphoma
     Dosage: RECEIVED ON DAY 1 OF THE CYCLE; EVERY 3 WEEKS UNDER?R-CHOP REGIMEN
     Route: 042
  3. ADRIAMYCIN [Suspect]
     Active Substance: DOXORUBICIN HYDROCHLORIDE
     Indication: Diffuse large B-cell lymphoma
     Dosage: RECEIVED ON DAY 2 OF THE CYCLE; EVERY 3 WEEKS UNDER?R-CHOP REGIMEN
     Route: 042
  4. VINCRISTINE [Suspect]
     Active Substance: VINCRISTINE
     Indication: Diffuse large B-cell lymphoma
     Dosage: RECEIVED ON DAY 2 OF THE CYCLE; EVERY 3 WEEKS UNDER?R-CHOP REGIMEN
     Route: 042
  5. VINCRISTINE [Suspect]
     Active Substance: VINCRISTINE
     Indication: Diffuse large B-cell lymphoma
     Dosage: RECEIVED INCREASED DOSE UP TO?2.0 MG/M2 ON DAY 2 OF THE CYCLE; EVERY 3 WEEKS UNDER?R-CHOP REGIMEN
     Route: 042

REACTIONS (1)
  - Interstitial lung disease [Fatal]
